FAERS Safety Report 7513494-X (Version None)
Quarter: 2011Q2

REPORT INFORMATION
  Report Type: 
  Country: None (occurrence: None)
  Receive Date: 20110531
  Receipt Date: 20110519
  Transmission Date: 20111010
  Serious: Yes (Other)
  Sender: FDA-Public Use
  Company Number: US-BAYER-2011-043494

PATIENT
  Age: 78 Year
  Sex: Female

DRUGS (1)
  1. CIPRO [Suspect]
     Indication: EAR INFECTION
     Dosage: 500 MG, BID
     Route: 048
     Dates: start: 20110518

REACTIONS (5)
  - FATIGUE [None]
  - RASH PAPULAR [None]
  - MEMORY IMPAIRMENT [None]
  - CONFUSIONAL STATE [None]
  - FAECES DISCOLOURED [None]
